FAERS Safety Report 7409827-5 (Version None)
Quarter: 2011Q2

REPORT INFORMATION
  Report Type: 
  Country: None (occurrence: None)
  Receive Date: 20110412
  Receipt Date: 20101021
  Transmission Date: 20111010
  Serious: Yes (Hospitalization, Other)
  Sender: FDA-Public Use
  Company Number: US-BAYER-201010048NA

PATIENT
  Age: 19 Year
  Sex: Female
  Weight: 61.678 kg

DRUGS (5)
  1. YASMIN [Suspect]
     Indication: CONTRACEPTION
     Route: 048
     Dates: start: 20070801, end: 20080915
  2. IRON [Concomitant]
     Dosage: UNK
     Dates: start: 20090701
  3. RED BLOOD CELLS [Concomitant]
     Indication: ANAEMIA
     Dosage: UNK
     Dates: start: 20090701
  4. YAZ [Suspect]
     Indication: PRODUCT USED FOR UNKNOWN INDICATION
     Route: 048
  5. DEPO-PROVERA [Concomitant]
     Indication: CONTRACEPTION
     Dosage: UNK
     Dates: start: 20090601

REACTIONS (4)
  - POSTPARTUM HAEMORRHAGE [None]
  - THROMBOSIS [None]
  - UTERINE INVERSION [None]
  - HYSTERECTOMY [None]
